FAERS Safety Report 17977165 (Version 2)
Quarter: 2020Q3

REPORT INFORMATION
  Report Type: Report from Study
  Country: IN (occurrence: IN)
  Receive Date: 20200702
  Receipt Date: 20200706
  Transmission Date: 20201103
  Serious: Yes (Death, Hospitalization)
  Sender: FDA-Public Use
  Company Number: NVSC2020IN187331

PATIENT
  Age: 42 Year
  Sex: Male

DRUGS (1)
  1. TAURITMO [Suspect]
     Active Substance: MIDOSTAURIN
     Indication: ACUTE MYELOID LEUKAEMIA
     Dosage: 50 MG, BID
     Route: 048
     Dates: start: 20190828, end: 20200603

REACTIONS (2)
  - Osteomyelitis [Unknown]
  - Death [Fatal]

NARRATIVE: CASE EVENT DATE: 20200603
